FAERS Safety Report 15221986 (Version 1)
Quarter: 2018Q3

REPORT INFORMATION
  Report Type: Spontaneous
  Country: GB (occurrence: GB)
  Receive Date: 20180731
  Receipt Date: 20180731
  Transmission Date: 20181010
  Serious: Yes (Other)
  Sender: FDA-Public Use
  Company Number: GB-ALLERGAN-1837271US

PATIENT
  Age: 69 Year
  Sex: Female
  Weight: 68 kg

DRUGS (15)
  1. TOLTERODINE TARTRATE. [Concomitant]
     Active Substance: TOLTERODINE TARTRATE
     Dosage: 2 DF, QD
     Route: 065
     Dates: start: 20180314
  2. RISEDRONATE SODIUM ? BP [Suspect]
     Active Substance: RISEDRONATE SODIUM
     Indication: PRODUCT USED FOR UNKNOWN INDICATION
     Dosage: UNK
     Route: 065
     Dates: start: 20180620
  3. ALGINIC ACID [Concomitant]
     Active Substance: ALGINIC ACID
     Dosage: 40 ML, QD (30 MIN AFTER MEALS IN MORNING AND AT BED TIME)
     Route: 065
     Dates: start: 20160119
  4. CLOBETASONE BUTYRATE [Concomitant]
     Active Substance: CLOBETASONE BUTYRATE
     Dosage: 1 DF, QD (1?2 TIMES A DAY THINLY)
     Route: 065
     Dates: start: 20170921, end: 20180620
  5. ATORVASTATIN [Concomitant]
     Active Substance: ATORVASTATIN
     Dosage: 1 DF, QHS (AT NIGHT)
     Route: 065
     Dates: start: 20170731
  6. CARMELLOSE [Concomitant]
     Dosage: 1 DF, QD
     Route: 065
     Dates: start: 20161102
  7. FULTIUM [Concomitant]
     Active Substance: CHOLECALCIFEROL
     Dosage: UNK, BID
     Route: 065
     Dates: start: 20171103
  8. PROPRANOLOL [Concomitant]
     Active Substance: PROPRANOLOL HYDROCHLORIDE
     Dosage: 2 DF, QD
     Route: 065
     Dates: start: 20170904
  9. HYDROXOCOBALAMIN [Concomitant]
     Active Substance: HYDROXOCOBALAMIN
     Dosage: USE AS DIRECTED
     Route: 065
     Dates: start: 20180619, end: 20180620
  10. RAMIPRIL. [Concomitant]
     Active Substance: RAMIPRIL
     Dosage: 1 DF, QD
     Route: 065
     Dates: start: 20120615
  11. OMEPRAZOLE. [Concomitant]
     Active Substance: OMEPRAZOLE
     Dosage: 1 DF, QD
     Dates: start: 20150224
  12. NORTRIPTYLINE [Concomitant]
     Active Substance: NORTRIPTYLINE
     Dosage: AS DIRECTED
     Route: 065
     Dates: start: 20170904
  13. ALENDRONIC ACID [Concomitant]
     Active Substance: ALENDRONIC ACID
     Dosage: 1 DF, Q WEEK
     Route: 065
     Dates: start: 20020111, end: 20180620
  14. CALCIUM CARBONATE. [Concomitant]
     Active Substance: CALCIUM CARBONATE
     Dosage: 2 DF, QD
     Route: 065
     Dates: start: 20120626
  15. ESTRIOL [Concomitant]
     Active Substance: ESTRIOL
     Dosage: 2 DF, Q WEEK (TO BE INSERTED)
     Route: 065
     Dates: start: 20120626

REACTIONS (1)
  - Anaphylactoid reaction [Recovered/Resolved]

NARRATIVE: CASE EVENT DATE: 20180620
